FAERS Safety Report 15219752 (Version 1)
Quarter: 2018Q3

REPORT INFORMATION
  Report Type: Spontaneous
  Country: US (occurrence: US)
  Receive Date: 20180731
  Receipt Date: 20180731
  Transmission Date: 20181010
  Serious: Yes (Hospitalization)
  Sender: FDA-Public Use
  Company Number: US-HORIZON-PRO-0155-2018

PATIENT
  Age: 27 Year
  Sex: Male

DRUGS (1)
  1. PROCYSBI [Suspect]
     Active Substance: CYSTEAMINE BITARTRATE
     Indication: CYSTINOSIS
     Dosage: 500 MG (6X75 MG CAPSULES AND 2X25 MG CAPSULES) ORAL TWICE A DAY. TOTAL DAILY DOSE 1000 MG
     Route: 048

REACTIONS (1)
  - Herpes zoster [Unknown]
